FAERS Safety Report 7948494-9 (Version None)
Quarter: 2011Q4

REPORT INFORMATION
  Report Type: 
  Country: None (occurrence: None)
  Receive Date: 20111130
  Receipt Date: 20111115
  Transmission Date: 20120403
  Serious: No
  Sender: FDA-Public Use
  Company Number: US-B.I. PHARMACEUTICALS,INC./RIDGEFIELD-2011-BP-24777BP

PATIENT
  Sex: Male

DRUGS (20)
  1. TOPROL-XL [Concomitant]
     Dosage: 100 MG
     Route: 048
  2. LYCOPENE [Concomitant]
     Indication: ROUTINE HEALTH MAINTENANCE
     Dosage: 5 MG
     Route: 048
  3. ASCORBIC ACID [Concomitant]
     Indication: ROUTINE HEALTH MAINTENANCE
     Dosage: 5 MG
     Route: 048
  4. COENZYME Q10 [Concomitant]
     Indication: ROUTINE HEALTH MAINTENANCE
     Route: 048
  5. ALTACE [Concomitant]
     Dosage: 20 MG
     Route: 048
  6. METFORMIN HCL [Concomitant]
     Indication: DIABETES MELLITUS
     Dosage: 2550 MG
     Route: 048
  7. GLIPIZIDE [Concomitant]
     Indication: DIABETES MELLITUS
     Dosage: 5 MG
     Route: 048
  8. FISH OIL [Concomitant]
     Indication: ROUTINE HEALTH MAINTENANCE
     Route: 048
  9. MAGNESIUM SULFATE [Concomitant]
     Indication: ROUTINE HEALTH MAINTENANCE
     Dosage: 5 MG
     Route: 042
  10. LIPITOR [Concomitant]
     Indication: BLOOD CHOLESTEROL ABNORMAL
     Dosage: 20 MG
     Route: 048
  11. AMLODIPINE [Concomitant]
     Indication: HYPERTENSION
     Dosage: 10 MG
     Route: 048
  12. PREVACID [Concomitant]
     Indication: GASTROOESOPHAGEAL REFLUX DISEASE
     Dosage: 30 MG
     Route: 048
  13. FOLIC ACID [Concomitant]
     Indication: ROUTINE HEALTH MAINTENANCE
     Route: 048
  14. SELENIUM [Concomitant]
     Indication: ROUTINE HEALTH MAINTENANCE
     Route: 048
  15. CALCIUM CITRATE [Concomitant]
     Indication: ROUTINE HEALTH MAINTENANCE
     Dosage: 5 MG
     Route: 048
  16. PRADAXA [Suspect]
     Indication: ATRIAL FIBRILLATION
     Dosage: 300 MG
     Route: 048
     Dates: start: 20111019
  17. ALPHA LUPOIC ACID [Concomitant]
     Indication: ROUTINE HEALTH MAINTENANCE
     Route: 048
  18. MULTIPLE B COMPLEX [Concomitant]
     Indication: ROUTINE HEALTH MAINTENANCE
     Dosage: 5 MG
     Route: 048
  19. ASPIRIN [Concomitant]
     Indication: ROUTINE HEALTH MAINTENANCE
     Dosage: 162 MG
     Route: 048
  20. FLOMAX [Concomitant]
     Indication: URINARY TRACT DISORDER
     Dosage: 0.4 MG
     Route: 048

REACTIONS (2)
  - WEIGHT INCREASED [None]
  - DYSURIA [None]
